FAERS Safety Report 25180409 (Version 2)
Quarter: 2025Q2

REPORT INFORMATION
  Report Type: Spontaneous
  Country: US (occurrence: US)
  Receive Date: 20250409
  Receipt Date: 20250424
  Transmission Date: 20250717
  Serious: Yes (Other)
  Sender: TEVA
  Company Number: US-TEVA-VS-3317617

PATIENT
  Age: 51 Year
  Sex: Male

DRUGS (1)
  1. PAZOPANIB [Suspect]
     Active Substance: PAZOPANIB
     Indication: Sarcoma metastatic
     Route: 065

REACTIONS (2)
  - Myocarditis [Recovering/Resolving]
  - Ventricular arrhythmia [Recovering/Resolving]
